FAERS Safety Report 15890664 (Version 1)
Quarter: 2019Q1

REPORT INFORMATION
  Report Type: Report from Study
  Country: US (occurrence: US)
  Receive Date: 20190130
  Receipt Date: 20190130
  Transmission Date: 20190417
  Serious: Yes (Hospitalization)
  Sender: FDA-Public Use
  Company Number: US-TAIHO ONCOLOGY  INC-EU-2019-00271

PATIENT
  Age: 52 Year
  Sex: Male
  Weight: 77.18 kg

DRUGS (11)
  1. LONSURF [Suspect]
     Active Substance: TIPIRACIL HYDROCHLORIDE\TRIFLURIDINE
     Indication: COLON CANCER
     Dosage: CURRENT CYCLE UNKNOWN. LONSURF LAST SHIPPED 12/SEP/2018
     Route: 048
  2. PANTOPRAZOLE SODIUM. [Concomitant]
     Active Substance: PANTOPRAZOLE SODIUM
  3. PROPRANOLOL HCL [Concomitant]
     Active Substance: PROPRANOLOL HYDROCHLORIDE
  4. LEVOFLOXACIN. [Concomitant]
     Active Substance: LEVOFLOXACIN
  5. STIVARGA [Suspect]
     Active Substance: REGORAFENIB
     Indication: PRODUCT USED FOR UNKNOWN INDICATION
     Dosage: NI
  6. NYSTATIN. [Concomitant]
     Active Substance: NYSTATIN
     Dosage: 100000
  7. SUCRALFATE. [Concomitant]
     Active Substance: SUCRALFATE
  8. ALPRAZOLAM. [Concomitant]
     Active Substance: ALPRAZOLAM
  9. LONSURF [Suspect]
     Active Substance: TIPIRACIL HYDROCHLORIDE\TRIFLURIDINE
     Indication: COLON CANCER
  10. TEMAZEPAM. [Concomitant]
     Active Substance: TEMAZEPAM
  11. ELIQUIS [Concomitant]
     Active Substance: APIXABAN

REACTIONS (4)
  - Blood urine present [Unknown]
  - Pyrexia [Unknown]
  - Renal impairment [Unknown]
  - Dehydration [Unknown]

NARRATIVE: CASE EVENT DATE: 201812
